FAERS Safety Report 11254299 (Version 1)
Quarter: 2015Q3

REPORT INFORMATION
  Report Type: Spontaneous
  Country: US (occurrence: None)
  Receive Date: 20150708
  Receipt Date: 20150708
  Transmission Date: 20151125
  Serious: Yes (Other)
  Sender: FDA-Public Use
  Company Number: None

PATIENT
  Age: 78 Year
  Sex: Male
  Weight: 113.4 kg

DRUGS (30)
  1. MELOXICAM. [Concomitant]
     Active Substance: MELOXICAM
  2. CHONDROITIN [Concomitant]
     Active Substance: CHONDROITIN
  3. FLORISTOR [Concomitant]
  4. SCALE [Concomitant]
  5. VITAMIN B12 [Concomitant]
     Active Substance: CYANOCOBALAMIN
  6. COMPRESSION BOOTS [Concomitant]
  7. LIFT RECLINER [Concomitant]
  8. CENTRUM SILVER [Concomitant]
     Active Substance: VITAMINS
  9. NIACIN. [Concomitant]
     Active Substance: NIACIN
  10. PRESERVISION [Concomitant]
     Active Substance: MINERALS\VITAMINS
  11. IRON [Concomitant]
     Active Substance: IRON
  12. AZILECT [Concomitant]
     Active Substance: RASAGILINE MESYLATE
  13. SPHYGOMOMOMETER [Concomitant]
  14. VITAMIN D [Concomitant]
     Active Substance: CHOLECALCIFEROL
  15. COQ10 [Concomitant]
     Active Substance: UBIDECARENONE
  16. POTASSIUM [Concomitant]
     Active Substance: POTASSIUM
  17. LASIX [Concomitant]
     Active Substance: FUROSEMIDE
  18. TAMULOSIN [Concomitant]
     Active Substance: TAMSULOSIN
  19. SINGULAIR [Concomitant]
     Active Substance: MONTELUKAST SODIUM
  20. WALKER SEAT [Concomitant]
     Active Substance: DEVICE
  21. VITAMIN C [Concomitant]
     Active Substance: ASCORBIC ACID
  22. MAG.OX [Concomitant]
  23. HYDROCODONE [Concomitant]
     Active Substance: HYDROCODONE
  24. STETHOSCOPE [Concomitant]
  25. DEFINITY [Suspect]
     Active Substance: PERFLUTREN
  26. FINASTERIDE. [Concomitant]
     Active Substance: FINASTERIDE
  27. CARBIDOPA-LEVODOPA [Concomitant]
     Active Substance: CARBIDOPA\LEVODOPA
  28. GLUCOSAMINE [Concomitant]
     Active Substance: GLUCOSAMINE
  29. WHEELCHAIR [Concomitant]
     Active Substance: DEVICE
  30. KEFLEX [Concomitant]
     Active Substance: CEPHALEXIN

REACTIONS (3)
  - Apparent death [None]
  - Headache [None]
  - Pain in extremity [None]

NARRATIVE: CASE EVENT DATE: 20141216
